FAERS Safety Report 16914482 (Version 3)
Quarter: 2020Q2

REPORT INFORMATION
  Report Type: Spontaneous
  Country: US (occurrence: US)
  Receive Date: 20191014
  Receipt Date: 20200603
  Transmission Date: 20200713
  Serious: No
  Sender: FDA-Public Use
  Company Number: US-JNJFOC-20191015440

PATIENT
  Sex: Male
  Weight: 86.71 kg

DRUGS (27)
  1. RANEXA [Concomitant]
     Active Substance: RANOLAZINE
  2. PINDOLOL. [Concomitant]
     Active Substance: PINDOLOL
  3. TRAMADOL. [Concomitant]
     Active Substance: TRAMADOL
  4. PEPCID [Concomitant]
     Active Substance: FAMOTIDINE
     Route: 065
  5. LOVAZA [Concomitant]
     Active Substance: OMEGA-3-ACID ETHYL ESTERS
     Route: 065
  6. FLOMAX [Concomitant]
     Active Substance: TAMSULOSIN HYDROCHLORIDE
     Route: 065
  7. COLACE [Concomitant]
     Active Substance: DOCUSATE SODIUM
     Route: 065
  8. NITROSTAT [Concomitant]
     Active Substance: NITROGLYCERIN
     Route: 065
  9. BUSPIRONE [Concomitant]
     Active Substance: BUSPIRONE HYDROCHLORIDE
  10. MEDROL [Concomitant]
     Active Substance: METHYLPREDNISOLONE
     Route: 065
  11. LISINOPRIL. [Concomitant]
     Active Substance: LISINOPRIL
  12. VITAMIN E                          /00110501/ [Concomitant]
     Active Substance: TOCOPHEROL
  13. DESMOPRESSIN [Concomitant]
     Active Substance: DESMOPRESSIN
  14. LEVOTHYROXINE. [Concomitant]
     Active Substance: LEVOTHYROXINE
  15. CLOPIDOGREL [Concomitant]
     Active Substance: CLOPIDOGREL BISULFATE
  16. RANITIDINE. [Concomitant]
     Active Substance: RANITIDINE
  17. OMEPRAZOLE. [Concomitant]
     Active Substance: OMEPRAZOLE
  18. OXYTYNIN [Concomitant]
  19. FIBER [Concomitant]
     Active Substance: PSYLLIUM HUSK
  20. MEGACE [Concomitant]
     Active Substance: MEGESTROL ACETATE
     Route: 065
  21. ASPIRIN                            /00002701/ [Concomitant]
     Active Substance: ASPIRIN
  22. OMEGA 3                            /01333901/ [Concomitant]
     Active Substance: FISH OIL\TOCOPHEROL
  23. VIT D [Concomitant]
     Active Substance: VITAMIN D NOS
  24. AVODART [Concomitant]
     Active Substance: DUTASTERIDE
  25. ZYTIGA [Suspect]
     Active Substance: ABIRATERONE ACETATE
     Indication: PRODUCT USED FOR UNKNOWN INDICATION
     Route: 048
     Dates: start: 201904, end: 201909
  26. ROSUVASTATIN. [Concomitant]
     Active Substance: ROSUVASTATIN
  27. MACRODANTIN [Concomitant]
     Active Substance: NITROFURANTOIN
     Route: 065

REACTIONS (14)
  - Nausea [Recovering/Resolving]
  - Arthralgia [Recovering/Resolving]
  - Hot flush [Recovering/Resolving]
  - Dyspnoea [Not Recovered/Not Resolved]
  - Contusion [Recovering/Resolving]
  - Myalgia [Not Recovered/Not Resolved]
  - Headache [Recovering/Resolving]
  - Asthenia [Not Recovered/Not Resolved]
  - Hypersomnia [Unknown]
  - Abdominal pain upper [Recovering/Resolving]
  - Fatigue [Not Recovered/Not Resolved]
  - Adverse drug reaction [Unknown]
  - Dizziness [Unknown]
  - Dyspepsia [Recovering/Resolving]

NARRATIVE: CASE EVENT DATE: 2019
